FAERS Safety Report 9721956 (Version 3)
Quarter: 2014Q1

REPORT INFORMATION
  Report Type: Spontaneous
  Country: LT (occurrence: LT)
  Receive Date: 20131202
  Receipt Date: 20140107
  Transmission Date: 20141002
  Serious: Yes (Other)
  Sender: FDA-Public Use
  Company Number: LT-PFIZER INC-2013338263

PATIENT
  Age: 43 Year
  Sex: Female

DRUGS (4)
  1. AMIODARONE HCL [Suspect]
     Indication: ARRHYTHMIA
     Dosage: UNK
     Route: 065
  2. SILDENAFIL CITRATE [Suspect]
     Indication: PULMONARY ARTERIAL HYPERTENSION
     Dosage: 20 MG, 3X/DAY
     Route: 065
  3. WARFARIN [Concomitant]
     Indication: ARRHYTHMIA
     Dosage: UNK
  4. DIGOXIN [Concomitant]
     Indication: ARRHYTHMIA
     Dosage: UNK

REACTIONS (5)
  - Drug ineffective [Unknown]
  - Arrhythmia [Not Recovered/Not Resolved]
  - Condition aggravated [Not Recovered/Not Resolved]
  - Presyncope [Not Recovered/Not Resolved]
  - Off label use [Unknown]
